FAERS Safety Report 5583764-3 (Version None)
Quarter: 2008Q1

REPORT INFORMATION
  Report Type: 
  Country: None (occurrence: None)
  Receive Date: 20080103
  Receipt Date: 20080103
  Transmission Date: 20080703
  Serious: Yes (Hospitalization)
  Sender: FDA-Public Use
  Company Number: None

PATIENT
  Age: 37 Year
  Sex: Female

DRUGS (1)
  1. BEVACIZUMAB [Suspect]
     Indication: BREAST CANCER
     Dosage: 600MG 2 WEEK SCHEDULE IV
     Route: 042
     Dates: start: 20061023, end: 20071003

REACTIONS (5)
  - FEELING ABNORMAL [None]
  - IMPLANT SITE CELLULITIS [None]
  - IMPLANT SITE EFFUSION [None]
  - MALAISE [None]
  - PYREXIA [None]
